FAERS Safety Report 5961091-X (Version None)
Quarter: 2008Q4

REPORT INFORMATION
  Report Type: 
  Country: None (occurrence: None)
  Receive Date: 20081119
  Receipt Date: 20081111
  Transmission Date: 20090506
  Serious: Yes (Hospitalization, Other)
  Sender: FDA-Public Use
  Company Number: WAES 0807USA04503

PATIENT
  Age: 75 Year
  Sex: Male
  Weight: 102.0593 kg

DRUGS (22)
  1. CAP VORINOSTAT UNK [Suspect]
     Indication: ACUTE MYELOID LEUKAEMIA
     Dosage: 400 MG/DAILY/PO : 400 MG/DAILY/PO : 400 MG/DAILY/PO : 400 MG/DAILY/PO
     Route: 048
     Dates: start: 20080322, end: 20080402
  2. CAP VORINOSTAT UNK [Suspect]
     Indication: ACUTE MYELOID LEUKAEMIA
     Dosage: 400 MG/DAILY/PO : 400 MG/DAILY/PO : 400 MG/DAILY/PO : 400 MG/DAILY/PO
     Route: 048
     Dates: start: 20080426, end: 20080509
  3. CAP VORINOSTAT UNK [Suspect]
     Indication: ACUTE MYELOID LEUKAEMIA
     Dosage: 400 MG/DAILY/PO : 400 MG/DAILY/PO : 400 MG/DAILY/PO : 400 MG/DAILY/PO
     Route: 048
     Dates: start: 20080601, end: 20080614
  4. CAP VORINOSTAT UNK [Suspect]
     Indication: ACUTE MYELOID LEUKAEMIA
     Dosage: 400 MG/DAILY/PO : 400 MG/DAILY/PO : 400 MG/DAILY/PO : 400 MG/DAILY/PO
     Route: 048
     Dates: start: 20080629, end: 20080712
  5. INJ DECITABINE [Suspect]
     Indication: ACUTE MYELOID LEUKAEMIA
     Dosage: 45 MG/DAILY/IV : 44 MG/DAILY/IV : 45 MG/DAILY/IV : 44 MG/DAILY/IV
     Route: 042
     Dates: start: 20080317, end: 20080321
  6. INJ DECITABINE [Suspect]
     Indication: ACUTE MYELOID LEUKAEMIA
     Dosage: 45 MG/DAILY/IV : 44 MG/DAILY/IV : 45 MG/DAILY/IV : 44 MG/DAILY/IV
     Route: 042
     Dates: start: 20080421, end: 20080425
  7. INJ DECITABINE [Suspect]
     Indication: ACUTE MYELOID LEUKAEMIA
     Dosage: 45 MG/DAILY/IV : 44 MG/DAILY/IV : 45 MG/DAILY/IV : 44 MG/DAILY/IV
     Route: 042
     Dates: start: 20080527, end: 20080531
  8. INJ DECITABINE [Suspect]
     Indication: ACUTE MYELOID LEUKAEMIA
     Dosage: 45 MG/DAILY/IV : 44 MG/DAILY/IV : 45 MG/DAILY/IV : 44 MG/DAILY/IV
     Route: 042
     Dates: start: 20080624, end: 20080628
  9. KAYEXALATE [Concomitant]
  10. TOPROL-XL [Concomitant]
  11. ACETAMINOPHEN [Concomitant]
  12. ACYCLOVIR [Concomitant]
  13. ALLOPURINOL [Concomitant]
  14. CLINDAMYCIN HCL [Concomitant]
  15. DIPHENYDRAMINE HYDROCHLORIDE [Concomitant]
  16. GLUCOSAMINE [Concomitant]
  17. HYDROCODONE BITATRATE [Concomitant]
  18. LISINOPRIL [Concomitant]
  19. PREDNISONE TAB [Concomitant]
  20. PROCHLORPERAZINE [Concomitant]
  21. TAMSULOSIN HCL [Concomitant]
  22. VORICONAZOLE [Concomitant]

REACTIONS (2)
  - DEHYDRATION [None]
  - RENAL FAILURE ACUTE [None]
